FAERS Safety Report 4707020-8 (Version None)
Quarter: 2005Q3

REPORT INFORMATION
  Report Type: 
  Country: None (occurrence: None)
  Receive Date: 20050705
  Receipt Date: 20050705
  Transmission Date: 20060218
  Serious: Yes (Other)
  Sender: FDA-Public Use
  Company Number: None

PATIENT
  Sex: Male

DRUGS (2)
  1. CISPLATIN [Suspect]
     Indication: NEOPLASM MALIGNANT
     Dosage: 100 MG/M2 ON DAYS 1, 22, AND 43
     Dates: start: 20050615
  2. RADIATION [Suspect]
     Dosage: 70 GY

REACTIONS (2)
  - BLOOD CREATININE ABNORMAL [None]
  - DEEP VEIN THROMBOSIS [None]
